FAERS Safety Report 8854215 (Version 1)
Quarter: 2012Q4

REPORT INFORMATION
  Report Type: Spontaneous
  Country: US (occurrence: None)
  Receive Date: 20121018
  Receipt Date: 20121018
  Transmission Date: 20130627
  Serious: No
  Sender: FDA-Public Use
  Company Number: 2012P1059645

PATIENT
  Age: 48 Year
  Sex: Male
  Weight: 130.64 kg

DRUGS (4)
  1. SANTYL OINTMENT (NO PREF. NAME) [Suspect]
     Indication: SKIN WOUND
     Route: 061
     Dates: start: 20120911
  2. VICODIN [Concomitant]
  3. COUMADIN [Concomitant]
  4. THYROID [Concomitant]

REACTIONS (2)
  - Wound complication [None]
  - Wound complication [None]
